FAERS Safety Report 24418610 (Version 1)
Quarter: 2024Q4

REPORT INFORMATION
  Report Type: Spontaneous
  Country: US (occurrence: US)
  Receive Date: 20241009
  Receipt Date: 20241009
  Transmission Date: 20250114
  Serious: Yes (Other)
  Sender: FRESENIUS MEDICAL CARE
  Company Number: US-FMCRTG-FMC-2409-001181

PATIENT
  Age: 91 Year
  Sex: Female
  Weight: 53 kg

DRUGS (1)
  1. DELFLEX [Suspect]
     Active Substance: CALCIUM CHLORIDE\DEXTROSE\MAGNESIUM CHLORIDE\SODIUM CHLORIDE\SODIUM LACTATE
     Indication: End stage renal disease
     Dosage: 3 EXCHANGES, 2 L FILL VOLUME, 3 HOURS- DWELL TIME. TOTAL TREATMENT TIME 10 HR. 30 MINUTES.
     Route: 033

REACTIONS (1)
  - Peritonitis bacterial [Recovering/Resolving]
